FAERS Safety Report 16386318 (Version 3)
Quarter: 2020Q1

REPORT INFORMATION
  Report Type: Report from Study
  Country: JP (occurrence: JP)
  Receive Date: 20190603
  Receipt Date: 20200127
  Transmission Date: 20200409
  Serious: Yes (Death, Hospitalization)
  Sender: FDA-Public Use
  Company Number: JP-AMGEN-JPNCT2019086201

PATIENT
  Age: 71 Year
  Sex: Male

DRUGS (11)
  1. DARBEPOETIN ALFA [Suspect]
     Active Substance: DARBEPOETIN ALFA
     Indication: MYELODYSPLASTIC SYNDROME
     Dosage: 240 MICROGRAM, QWK
     Route: 058
     Dates: start: 20171116, end: 20180104
  2. MUCODYNE [Concomitant]
     Active Substance: CARBOCYSTEINE
     Dosage: UNK
     Route: 048
  3. TALION [Concomitant]
     Dosage: UNK
     Route: 048
  4. DARBEPOETIN ALFA [Suspect]
     Active Substance: DARBEPOETIN ALFA
     Dosage: 240 MICROGRAM, QWK
     Route: 058
     Dates: start: 20180510, end: 20180719
  5. JADENU [Concomitant]
     Active Substance: DEFERASIROX
     Dosage: UNK
     Route: 048
     Dates: start: 20180614, end: 20180704
  6. DARBEPOETIN ALFA [Suspect]
     Active Substance: DARBEPOETIN ALFA
     Dosage: 240 MICROGRAM, QWK
     Route: 058
     Dates: start: 20180201, end: 20180426
  7. TAMIFLU [Concomitant]
     Active Substance: OSELTAMIVIR PHOSPHATE
     Dosage: UNK
     Route: 048
     Dates: start: 20180111, end: 20180115
  8. EXJADE [Concomitant]
     Active Substance: DEFERASIROX
     Indication: MYELODYSPLASTIC SYNDROME
     Dosage: UNK
     Route: 048
  9. MUCODYNE [Concomitant]
     Active Substance: CARBOCYSTEINE
     Dosage: UNK
     Route: 048
     Dates: start: 20180125, end: 20180131
  10. MEDICON [Concomitant]
     Active Substance: DEXTROMETHORPHAN HYDROBROMIDE
     Dosage: UNK
     Route: 048
  11. EXJADE [Concomitant]
     Active Substance: DEFERASIROX
     Dosage: 500 MG
     Route: 048
     Dates: start: 20180222, end: 20180228

REACTIONS (3)
  - Haemochromatosis [Not Recovered/Not Resolved]
  - Disease progression [Fatal]
  - Platelet count decreased [Not Recovered/Not Resolved]

NARRATIVE: CASE EVENT DATE: 20180719
